FAERS Safety Report 9572874 (Version 1)
Quarter: 2013Q4

REPORT INFORMATION
  Report Type: Spontaneous
  Country: US (occurrence: None)
  Receive Date: 20130930
  Receipt Date: 20130930
  Transmission Date: 20140711
  Serious: Yes (Hospitalization)
  Sender: FDA-Public Use
  Company Number: None

PATIENT
  Age: 42 Year
  Sex: Female
  Weight: 53.98 kg

DRUGS (27)
  1. BORTEZOMIB [Suspect]
     Indication: GRAFT VERSUS HOST DISEASE
     Dosage: 0.6MG/M2  X 2WKS. WEEKLY SUBCUTANEOUS
     Route: 058
     Dates: start: 20130802, end: 20130903
  2. ZOVIRAX [Concomitant]
  3. ABILIFY [Concomitant]
  4. VIT C [Concomitant]
  5. DULCOLAX [Concomitant]
  6. VIT D3 [Concomitant]
  7. COLACE [Concomitant]
  8. CYMBALTA [Concomitant]
  9. DURAGESIC [Concomitant]
  10. FLONASE [Concomitant]
  11. NORCO 5/325 (WATSON LABORATORIES) [Concomitant]
  12. DILAUDID [Concomitant]
  13. ATARAX [Concomitant]
  14. INSULIN (NOVOLOG) [Concomitant]
  15. INSULIN (LANTUS) [Concomitant]
  16. SYNTHROID [Concomitant]
  17. ATIVAN [Concomitant]
  18. MAG-OX [Concomitant]
  19. MULTIVITAMINS W/ MINERALS [Concomitant]
  20. ZOFRAN [Concomitant]
  21. PROTONIX [Concomitant]
  22. MIRALAX [Concomitant]
  23. NOXAFIL [Concomitant]
  24. SENOKOT [Concomitant]
  25. OCEAN SPRAY [Concomitant]
  26. IMITREX [Concomitant]
  27. FK-506 [Concomitant]

REACTIONS (16)
  - Medical device pain [None]
  - Haemorrhage [None]
  - Local swelling [None]
  - Anaemia [None]
  - Viral infection [None]
  - Urinary tract infection [None]
  - Cellulitis [None]
  - Device related infection [None]
  - Pyrexia [None]
  - Fatigue [None]
  - Chills [None]
  - Sinus tachycardia [None]
  - Nasal congestion [None]
  - Cough [None]
  - Myalgia [None]
  - Decreased appetite [None]
